FAERS Safety Report 15109779 (Version 2)
Quarter: 2018Q3

REPORT INFORMATION
  Report Type: Spontaneous
  Country: TW (occurrence: TW)
  Receive Date: 20180705
  Receipt Date: 20180808
  Transmission Date: 20181010
  Serious: Yes (Death, Hospitalization, Other)
  Sender: FDA-Public Use
  Company Number: TW-ACTELION-A-CH2018-174522

PATIENT
  Age: 75 Year
  Sex: Male
  Weight: 70 kg

DRUGS (3)
  1. OPSUMIT [Suspect]
     Active Substance: MACITENTAN
     Indication: PULMONARY ARTERIAL HYPERTENSION
     Dosage: 10 MG, OD
     Route: 048
     Dates: start: 20160929, end: 20180615
  2. UPTRAVI [Suspect]
     Active Substance: SELEXIPAG
     Dosage: 600 MCG, BID
     Route: 048
  3. UPTRAVI [Suspect]
     Active Substance: SELEXIPAG
     Indication: PULMONARY ARTERIAL HYPERTENSION
     Dosage: UNK, BID
     Route: 048
     Dates: start: 20180328, end: 20180615

REACTIONS (21)
  - Coronary artery restenosis [Unknown]
  - Right ventricular failure [Unknown]
  - Blood bilirubin abnormal [Unknown]
  - Haemorrhage [Fatal]
  - Pulmonary oedema [Unknown]
  - Pulseless electrical activity [Unknown]
  - Aspartate aminotransferase increased [Unknown]
  - Hepatic enzyme increased [Unknown]
  - Transfusion [Unknown]
  - Dyspnoea [Unknown]
  - Hypertension [Unknown]
  - Disseminated intravascular coagulation [Fatal]
  - Liposarcoma [Unknown]
  - Oedema [Unknown]
  - Sputum abnormal [Unknown]
  - Lipoma excision [Unknown]
  - Explorative laparotomy [Unknown]
  - Cardiac arrest [Unknown]
  - Septic shock [Unknown]
  - Ventricular hypokinesia [Unknown]
  - Alanine aminotransferase increased [Unknown]

NARRATIVE: CASE EVENT DATE: 2018
